FAERS Safety Report 9913538 (Version 1)
Quarter: 2014Q1

REPORT INFORMATION
  Report Type: Spontaneous
  Country: FR (occurrence: FR)
  Receive Date: 20140220
  Receipt Date: 20140220
  Transmission Date: 20141002
  Serious: Yes (Other)
  Sender: FDA-Public Use
  Company Number: FR-ASTRAZENECA-2014SE10837

PATIENT
  Age: 858 Month
  Sex: Female

DRUGS (3)
  1. BRICANYL NEBULIZATION [Suspect]
     Indication: BRONCHITIS
     Dosage: ONE NEBULIZATION OF BRICANYL MIXED WITH BUDESONIDE MYLAN TWICE PER DAY
     Route: 055
     Dates: start: 20140204, end: 20140211
  2. BUDESONIDE MYLAN (GENERIC PRODUCT - MANUFACTURER: MYLAN) [Suspect]
     Indication: BRONCHITIS
     Dosage: ONE NEBULIZATION OF BRICANYL MIXED WITH BUDESONIDE MYLAN TWICE PER DAY
     Route: 055
     Dates: start: 20140204, end: 20140211
  3. PREVISCAN [Suspect]
     Route: 065

REACTIONS (4)
  - Haemoptysis [Recovering/Resolving]
  - Blood pressure increased [Unknown]
  - Drug ineffective [Unknown]
  - Off label use [Recovered/Resolved]
